FAERS Safety Report 13643937 (Version 1)
Quarter: 2017Q2

REPORT INFORMATION
  Report Type: Spontaneous
  Country: CN (occurrence: CN)
  Receive Date: 20170612
  Receipt Date: 20170612
  Transmission Date: 20170830
  Serious: Yes (Other)
  Sender: FDA-Public Use
  Company Number: CN-PFIZER INC-2017257080

PATIENT
  Age: 76 Year
  Sex: Female
  Weight: 44 kg

DRUGS (3)
  1. SOLU-MEDROL [Suspect]
     Active Substance: METHYLPREDNISOLONE SODIUM SUCCINATE
     Dosage: 60 MG, 1X/DAY
     Route: 041
     Dates: start: 20170328, end: 20170330
  2. SOLU-MEDROL [Suspect]
     Active Substance: METHYLPREDNISOLONE SODIUM SUCCINATE
     Indication: ORGANISING PNEUMONIA
     Dosage: 40 MG, 1X/DAY
     Route: 042
     Dates: start: 20170312, end: 20170322
  3. SOLU-MEDROL [Suspect]
     Active Substance: METHYLPREDNISOLONE SODIUM SUCCINATE
     Indication: ANTIINFLAMMATORY THERAPY
     Dosage: 80 MG, 1X/DAY
     Route: 041
     Dates: start: 20170322, end: 20170328

REACTIONS (3)
  - Organising pneumonia [Unknown]
  - Disease progression [Unknown]
  - Blood glucose increased [Recovering/Resolving]

NARRATIVE: CASE EVENT DATE: 20170324
